FAERS Safety Report 15371271 (Version 2)
Quarter: 2018Q3

REPORT INFORMATION
  Report Type: Spontaneous
  Country: FR (occurrence: FR)
  Receive Date: 20180911
  Receipt Date: 20180912
  Transmission Date: 20181010
  Serious: Yes (Hospitalization, Other)
  Sender: FDA-Public Use
  Company Number: FR-B.I. PHARMACEUTICALS,INC./RIDGEFIELD-2018-BI-044483

PATIENT
  Age: 95 Year
  Sex: Male

DRUGS (2)
  1. SIFROL [Suspect]
     Active Substance: PRAMIPEXOLE
     Indication: PARKINSON^S DISEASE
     Route: 048
  2. LASILIX [Suspect]
     Active Substance: FUROSEMIDE
     Indication: CARDIAC FAILURE
     Route: 065

REACTIONS (2)
  - Acute kidney injury [Not Recovered/Not Resolved]
  - Dehydration [Not Recovered/Not Resolved]

NARRATIVE: CASE EVENT DATE: 20180905
